FAERS Safety Report 15736867 (Version 1)
Quarter: 2018Q4

REPORT INFORMATION
  Report Type: Spontaneous
  Country: ES (occurrence: ES)
  Receive Date: 20181218
  Receipt Date: 20181218
  Transmission Date: 20190205
  Serious: Yes (Hospitalization)
  Sender: FDA-Public Use
  Company Number: ES-GILEAD-2018-0380209

PATIENT
  Age: 59 Year
  Sex: Male
  Weight: 70 kg

DRUGS (7)
  1. PROPRANOLOL [Concomitant]
     Active Substance: PROPRANOLOL HYDROCHLORIDE
  2. RIFAXIMINE [Concomitant]
  3. FUROSEMIDE. [Concomitant]
     Active Substance: FUROSEMIDE
  4. EPCLUSA [Suspect]
     Active Substance: SOFOSBUVIR\VELPATASVIR
     Dosage: 1 DF
     Route: 048
     Dates: start: 20181203
  5. EPCLUSA [Suspect]
     Active Substance: SOFOSBUVIR\VELPATASVIR
     Indication: HEPATITIS C
     Dosage: 1 DF
     Route: 048
     Dates: start: 20181104, end: 20181128
  6. SPIRONOLACTONE. [Concomitant]
     Active Substance: SPIRONOLACTONE
  7. PANTOPRAZOL A [Concomitant]

REACTIONS (1)
  - Febrile neutropenia [Recovered/Resolved]

NARRATIVE: CASE EVENT DATE: 20181126
